FAERS Safety Report 9633659 (Version 1)
Quarter: 2013Q4

REPORT INFORMATION
  Report Type: Spontaneous
  Country: US (occurrence: US)
  Receive Date: 20131021
  Receipt Date: 20131021
  Transmission Date: 20140711
  Serious: No
  Sender: FDA-Public Use
  Company Number: US-PFIZER INC-2013298757

PATIENT
  Sex: Female

DRUGS (2)
  1. XELJANZ [Suspect]
     Dosage: 5 MG, UNK
  2. XELJANZ [Suspect]
     Dosage: 5 MG, UNK

REACTIONS (2)
  - Nausea [Unknown]
  - Vomiting [Unknown]
